FAERS Safety Report 16084375 (Version 1)
Quarter: 2019Q1

REPORT INFORMATION
  Report Type: Spontaneous
  Country: GB (occurrence: GB)
  Receive Date: 20190318
  Receipt Date: 20190318
  Transmission Date: 20190418
  Serious: Yes (Hospitalization)
  Sender: FDA-Public Use
  Company Number: GB-AMREGENT-20190431

PATIENT
  Age: 17 Year

DRUGS (6)
  1. MUTROFLOR [Concomitant]
     Dosage: UNKNOWN
     Route: 065
  2. FERINJECT [Suspect]
     Active Substance: FERRIC CARBOXYMALTOSE
     Dosage: 1000 MG
     Route: 041
  3. OMEPRAZOLE. [Concomitant]
     Active Substance: OMEPRAZOLE
     Dosage: 40 MG (20 MG,2 IN 1 D)
     Route: 065
  4. BUDENOFALK [Concomitant]
     Active Substance: BUDESONIDE
     Dosage: 2 MG, ON
     Route: 065
  5. METHYLPREDNISOLONE. [Concomitant]
     Active Substance: METHYLPREDNISOLONE
     Dosage: 60 MG
     Route: 042
  6. PREDNISOLONE. [Concomitant]
     Active Substance: PREDNISOLONE
     Dosage: 5 MG,1 IN 1 D
     Route: 048

REACTIONS (3)
  - Abdominal symptom [Unknown]
  - Blood phosphorus decreased [Recovered/Resolved]
  - Colitis ulcerative [Unknown]
